FAERS Safety Report 20715412 (Version 1)
Quarter: 2022Q2

REPORT INFORMATION
  Report Type: Report from Study
  Country: US (occurrence: US)
  Receive Date: 20220415
  Receipt Date: 20220415
  Transmission Date: 20220721
  Serious: Yes (Life-Threatening, Other)
  Sender: FDA-Public Use
  Company Number: US-BRISTOL-MYERS SQUIBB COMPANY-2022-019250

PATIENT
  Age: 50 Year
  Sex: Male
  Weight: 134 kg

DRUGS (1)
  1. REVLIMID [Suspect]
     Active Substance: LENALIDOMIDE
     Indication: Plasma cell myeloma
     Dosage: 3 WEEKS ON , ONE WEEK OFF
     Route: 048
     Dates: start: 20210219

REACTIONS (2)
  - Stress [Unknown]
  - Thrombosis [Unknown]

NARRATIVE: CASE EVENT DATE: 20220101
